FAERS Safety Report 21855595 (Version 2)
Quarter: 2023Q1

REPORT INFORMATION
  Report Type: Report from Study
  Country: US (occurrence: US)
  Receive Date: 20230112
  Receipt Date: 20230113
  Transmission Date: 20230418
  Serious: No
  Sender: FDA-Public Use
  Company Number: US-ABBVIE-4235347

PATIENT
  Age: 66 Year
  Sex: Female

DRUGS (1)
  1. HUMIRA [Suspect]
     Active Substance: ADALIMUMAB
     Indication: Rheumatoid arthritis
     Route: 058
     Dates: start: 20190501

REACTIONS (4)
  - SARS-CoV-2 test positive [Recovered/Resolved]
  - Oropharyngeal pain [Recovering/Resolving]
  - Increased upper airway secretion [Recovering/Resolving]
  - Paranasal sinus discomfort [Unknown]

NARRATIVE: CASE EVENT DATE: 20221201
